FAERS Safety Report 26148429 (Version 1)
Quarter: 2025Q4

REPORT INFORMATION
  Report Type: Spontaneous
  Country: CN (occurrence: CN)
  Receive Date: 20251212
  Receipt Date: 20251212
  Transmission Date: 20260118
  Serious: Yes (Other)
  Sender: DR REDDYS
  Company Number: CN-CHN-CHN/2025/12/018812

PATIENT
  Age: 61 Year
  Sex: Female

DRUGS (2)
  1. LENALIDOMIDE [Suspect]
     Active Substance: LENALIDOMIDE
     Indication: POEMS syndrome
     Dosage: 25 MG, DAYS 1-21
  2. DEXAMETHASONE [Concomitant]
     Active Substance: DEXAMETHASONE
     Indication: POEMS syndrome
     Dosage: 10 MG, DAYS 1-2, 8-9, 15-16 AND 22-23

REACTIONS (1)
  - Aplasia pure red cell [Recovering/Resolving]
